FAERS Safety Report 22362043 (Version 2)
Quarter: 2023Q2

REPORT INFORMATION
  Report Type: Spontaneous
  Country: US (occurrence: US)
  Receive Date: 20230524
  Receipt Date: 20230606
  Transmission Date: 20230722
  Serious: Yes (Other)
  Sender: FDA-Public Use
  Company Number: US-PFIZER INC-202300196018

PATIENT
  Age: 59 Year
  Sex: Female

DRUGS (3)
  1. BOSULIF [Suspect]
     Active Substance: BOSUTINIB MONOHYDRATE
     Dosage: 400 MG, DAILY
     Route: 048
     Dates: start: 20230517, end: 20230526
  2. SPRYCEL [Concomitant]
     Active Substance: DASATINIB
     Dosage: 70 MG, DAILY
     Route: 048
     Dates: start: 20210913, end: 20230425
  3. TASIGNA [Concomitant]
     Active Substance: NILOTINIB
     Dosage: 300 MG, 2X/DAY (150 MG, TAKE 2 CAPSULES EVERY 12 HOURS)
     Route: 048
     Dates: start: 20221106

REACTIONS (11)
  - Ileus paralytic [Unknown]
  - Neoplasm progression [Unknown]
  - Abdominal pain [Not Recovered/Not Resolved]
  - Constipation [Not Recovered/Not Resolved]
  - Fluid retention [Not Recovered/Not Resolved]
  - Weight increased [Not Recovered/Not Resolved]
  - Irritable bowel syndrome [Unknown]
  - Depression [Unknown]
  - Bronchitis [Unknown]
  - Immune system disorder [Unknown]
  - Abdominal distension [Not Recovered/Not Resolved]

NARRATIVE: CASE EVENT DATE: 20230101
